FAERS Safety Report 6381364 (Version 2)
Quarter: 2013Q2

REPORT INFORMATION
  Report Type: Spontaneous
  Country: FR (occurrence: FR)
  Receive Date: 20070813
  Receipt Date: 20130621
  Transmission Date: 20140414
  Serious: Yes (Hospitalization)
  Sender: FDA-Public Use
  Company Number: FR-BRISTOL-MYERS SQUIBB COMPANY-13873872

PATIENT
  Age: 46 Year
  Sex: Female
  Weight: 55 kg

DRUGS (7)
  1. REYATAZ [Suspect]
     Indication: HIV INFECTION
     Route: 048
     Dates: start: 20060710, end: 20070701
  2. TELZIR [Suspect]
     Route: 048
     Dates: start: 20060710
  3. EFEXOR [Concomitant]
  4. LARGACTIL [Concomitant]
  5. NEURONTIN [Concomitant]
  6. RIVOTRIL [Concomitant]
  7. NORVIR [Concomitant]

REACTIONS (2)
  - Cystitis haemorrhagic [Recovering/Resolving]
  - Calculus urinary [Recovering/Resolving]
